FAERS Safety Report 4620720-3 (Version None)
Quarter: 2005Q1

REPORT INFORMATION
  Report Type: 
  Country: None (occurrence: None)
  Receive Date: 20050325
  Receipt Date: 20050309
  Transmission Date: 20050727
  Serious: Yes (Hospitalization)
  Sender: FDA-Public Use
  Company Number: 2005BI005520

PATIENT
  Age: 44 Year
  Sex: Male
  Weight: 124.7392 kg

DRUGS (6)
  1. AVONEX [Suspect]
     Indication: MULTIPLE SCLEROSIS
     Dosage: 30 UG; QW; IM
     Route: 030
     Dates: start: 20040701, end: 20041101
  2. OXYCONTIN [Concomitant]
  3. NEURONTIN [Concomitant]
  4. EFFEXOR [Concomitant]
  5. HYZAAR [Concomitant]
  6. SLEEPING PILL [Concomitant]

REACTIONS (3)
  - FALL [None]
  - HIP FRACTURE [None]
  - WALKING AID USER [None]
